FAERS Safety Report 11877941 (Version 1)
Quarter: 2015Q4

REPORT INFORMATION
  Report Type: Spontaneous
  Country: FR (occurrence: FR)
  Receive Date: 20151230
  Receipt Date: 20151230
  Transmission Date: 20160305
  Serious: Yes (Hospitalization)
  Sender: FDA-Public Use
  Company Number: FR-ROCHE-1685949

PATIENT
  Age: 61 Year
  Sex: Male

DRUGS (5)
  1. MOPRAL [Concomitant]
     Active Substance: OMEPRAZOLE SODIUM
  2. LOXEN (FRANCE) [Concomitant]
     Active Substance: NICARDIPINE HYDROCHLORIDE
  3. KEPPRA [Concomitant]
     Active Substance: LEVETIRACETAM
  4. AVASTIN [Suspect]
     Active Substance: BEVACIZUMAB
     Indication: GLIOBLASTOMA
     Route: 042
     Dates: start: 20150619, end: 20150619
  5. SOLU-MEDROL [Concomitant]
     Active Substance: METHYLPREDNISOLONE SODIUM SUCCINATE

REACTIONS (1)
  - Aphasia [Recovered/Resolved]

NARRATIVE: CASE EVENT DATE: 20150619
